FAERS Safety Report 8848040 (Version 1)
Quarter: 2012Q4

REPORT INFORMATION
  Report Type: 
  Country: US (occurrence: US)
  Receive Date: 20121018
  Receipt Date: 20121018
  Transmission Date: 20130627
  Serious: Yes (Hospitalization)
  Sender: FDA-Public Use
  Company Number: US-ELI_LILLY_AND_COMPANY-US201210003591

PATIENT
  Sex: Female

DRUGS (3)
  1. HUMALOG LISPRO [Suspect]
     Indication: DIABETES MELLITUS
     Dosage: UNK, unknown
  2. LANTUS [Concomitant]
     Indication: DIABETES MELLITUS
     Dosage: 10 u, UNK
  3. NOVOLOG [Concomitant]
     Indication: DIABETES MELLITUS

REACTIONS (2)
  - Mental disorder [Unknown]
  - Blood glucose increased [Unknown]
